FAERS Safety Report 22105132 (Version 2)
Quarter: 2023Q2

REPORT INFORMATION
  Report Type: Report from Study
  Country: US (occurrence: US)
  Receive Date: 20230316
  Receipt Date: 20230414
  Transmission Date: 20230721
  Serious: Yes (Hospitalization)
  Sender: FDA-Public Use
  Company Number: US-ABBVIE-4342688

PATIENT
  Sex: Female

DRUGS (1)
  1. SKYRIZI [Suspect]
     Active Substance: RISANKIZUMAB-RZAA
     Indication: Psoriasis
     Route: 058
     Dates: start: 20220830

REACTIONS (10)
  - Seizure [Unknown]
  - Blood glucose decreased [Recovered/Resolved]
  - Diabetes mellitus [Recovered/Resolved]
  - Diabetes mellitus inadequate control [Unknown]
  - Fall [Unknown]
  - Injury [Unknown]
  - Disorientation [Unknown]
  - Urticaria [Unknown]
  - Mobility decreased [Unknown]
  - Bacterial infection [Recovered/Resolved]

NARRATIVE: CASE EVENT DATE: 20230101
